FAERS Safety Report 5354595-4 (Version None)
Quarter: 2007Q2

REPORT INFORMATION
  Report Type: 
  Country: None (occurrence: None)
  Receive Date: 20070611
  Receipt Date: 20061106
  Transmission Date: 20071010
  Serious: Yes (Death, Life-Threatening, Hospitalization)
  Sender: FDA-Public Use
  Company Number: A-US2006-13471

PATIENT
  Age: 53 Year
  Sex: Female
  Weight: 44.5 kg

DRUGS (2)
  1. TRACLEER [Suspect]
     Indication: PULMONARY HYPERTENSION
     Dosage: SEE IMAGE
     Route: 048
     Dates: start: 20060410, end: 20060509
  2. TRACLEER [Suspect]
     Indication: PULMONARY HYPERTENSION
     Dosage: SEE IMAGE
     Route: 048
     Dates: start: 20060510, end: 20061011

REACTIONS (5)
  - HYPERCAPNIA [None]
  - HYPOXIA [None]
  - LUNG INFECTION [None]
  - RESPIRATORY FAILURE [None]
  - SYNCOPE [None]
